FAERS Safety Report 8246642 (Version 5)
Quarter: 2013Q1

REPORT INFORMATION
  Report Type: Spontaneous
  Country: US (occurrence: US)
  Receive Date: 20111116
  Receipt Date: 20130208
  Transmission Date: 20140127
  Serious: Yes (Hospitalization, Other)
  Sender: FDA-Public Use
  Company Number: US-PFIZER INC-2011275510

PATIENT
  Age: 34 Year
  Sex: Female
  Weight: 126 kg

DRUGS (3)
  1. DEPO-PROVERA [Suspect]
     Indication: CONTRACEPTION
     Dosage: 150 MG/ML
     Route: 030
     Dates: start: 20030325
  2. DEPO-PROVERA [Suspect]
     Dosage: 1 ML, UNK
     Route: 030
     Dates: start: 20040701
  3. DEPO-PROVERA [Suspect]
     Dosage: UNK

REACTIONS (38)
  - Dyspnoea [Unknown]
  - Movement disorder [Unknown]
  - Osteogenesis imperfecta [Not Recovered/Not Resolved]
  - Convulsion [Unknown]
  - Haemorrhage [Unknown]
  - Thrombosis [Unknown]
  - Local swelling [Unknown]
  - Headache [Not Recovered/Not Resolved]
  - Disturbance in attention [Not Recovered/Not Resolved]
  - Memory impairment [Unknown]
  - Dysarthria [Not Recovered/Not Resolved]
  - Gait disturbance [Unknown]
  - Visual impairment [Unknown]
  - Depression [Not Recovered/Not Resolved]
  - Anxiety [Not Recovered/Not Resolved]
  - Weight fluctuation [Unknown]
  - Bone density decreased [Unknown]
  - Hormone level abnormal [Unknown]
  - Menorrhagia [Unknown]
  - Menstruation irregular [Unknown]
  - Injection site rash [Not Recovered/Not Resolved]
  - Injection site inflammation [Unknown]
  - Alopecia [Unknown]
  - Bone pain [Unknown]
  - Joint stiffness [Not Recovered/Not Resolved]
  - Pelvic adhesions [Unknown]
  - Abdominal pain lower [Unknown]
  - Abdominal pain upper [Unknown]
  - Burnout syndrome [Unknown]
  - Fatigue [Unknown]
  - Emotional disorder [Unknown]
  - Menopause [Unknown]
  - Asthenia [Unknown]
  - Hot flush [Unknown]
  - Night sweats [Unknown]
  - Jaundice [Unknown]
  - Hypertension [Unknown]
  - Malaise [Unknown]
